FAERS Safety Report 7570102-X (Version None)
Quarter: 2011Q2

REPORT INFORMATION
  Report Type: 
  Country: None (occurrence: None)
  Receive Date: 20110525
  Receipt Date: 20110328
  Transmission Date: 20111010
  Serious: No
  Sender: FDA-Public Use
  Company Number: 325742

PATIENT
  Age: 61 Year
  Sex: Female

DRUGS (2)
  1. METFORMN (METFORMIN) [Concomitant]
  2. VICTOZA [Suspect]
     Indication: TYPE 2 DIABETES MELLITUS
     Dosage: 0.6 MG, QD, SUBCUTANEOUS
     Route: 058
     Dates: start: 20110321

REACTIONS (4)
  - DYSGEUSIA [None]
  - NASOPHARYNGITIS [None]
  - HEADACHE [None]
  - PAIN [None]
